FAERS Safety Report 4804698-5 (Version None)
Quarter: 2005Q4

REPORT INFORMATION
  Report Type: 
  Country: None (occurrence: None)
  Receive Date: 20051020
  Receipt Date: 20051018
  Transmission Date: 20060501
  Serious: Yes (Other)
  Sender: FDA-Public Use
  Company Number: US-JNJFOC-20050905865

PATIENT
  Sex: Female

DRUGS (3)
  1. LEVAQUIN [Suspect]
     Indication: SINUSITIS
     Route: 048
  2. ALLEGRA [Concomitant]
  3. ALLEGRA [Concomitant]

REACTIONS (2)
  - DISTURBANCE IN ATTENTION [None]
  - DYSARTHRIA [None]
